FAERS Safety Report 6756131-4 (Version None)
Quarter: 2010Q2

REPORT INFORMATION
  Report Type: 
  Country: None (occurrence: None)
  Receive Date: 20100604
  Receipt Date: 20100525
  Transmission Date: 20101027
  Serious: Yes (Hospitalization)
  Sender: FDA-Public Use
  Company Number: IT-JNJFOC-20080301932

PATIENT
  Age: 45 Year
  Sex: Male
  Weight: 66 kg

DRUGS (8)
  1. REMICADE [Suspect]
     Indication: COLITIS ULCERATIVE
     Route: 042
  2. DELTACORTENE [Concomitant]
     Indication: COLITIS ULCERATIVE
     Route: 048
  3. DELTACORTENE [Concomitant]
     Route: 048
  4. LIMPIDEX [Concomitant]
     Indication: GASTROINTESTINAL DISORDER THERAPY
     Route: 048
  5. AZATIOPRINA [Concomitant]
     Indication: COLITIS ULCERATIVE
     Route: 048
  6. ASACOL [Concomitant]
     Indication: COLITIS ULCERATIVE
     Route: 048
  7. ASACOL [Concomitant]
     Route: 054
  8. TOPSTER [Concomitant]
     Indication: COLITIS ULCERATIVE
     Route: 054

REACTIONS (7)
  - ABDOMINAL PAIN [None]
  - ARTHRALGIA [None]
  - BACK PAIN [None]
  - COLITIS ULCERATIVE [None]
  - DIARRHOEA [None]
  - MYALGIA [None]
  - PYREXIA [None]
